FAERS Safety Report 7249684-3 (Version None)
Quarter: 2011Q1

REPORT INFORMATION
  Report Type: 
  Country: None (occurrence: None)
  Receive Date: 20110128
  Receipt Date: 20110121
  Transmission Date: 20110831
  Serious: Yes (Hospitalization)
  Sender: FDA-Public Use
  Company Number: US-JNJFOC-20110106152

PATIENT

DRUGS (1)
  1. FENTANYL-100 [Suspect]
     Indication: ILL-DEFINED DISORDER
     Route: 062

REACTIONS (3)
  - HOSPITALISATION [None]
  - MEDICATION ERROR [None]
  - INCORRECT DOSE ADMINISTERED [None]
